FAERS Safety Report 5522708-7 (Version None)
Quarter: 2007Q4

REPORT INFORMATION
  Report Type: 
  Country: None (occurrence: None)
  Receive Date: 20071120
  Receipt Date: 20071015
  Transmission Date: 20080405
  Serious: Yes (Other)
  Sender: FDA-Public Use
  Company Number: CN-PFIZER INC-2007096210

PATIENT
  Sex: Female

DRUGS (1)
  1. MEDROL [Suspect]
     Indication: EOSINOPHILIA
     Route: 048

REACTIONS (1)
  - CATARACT [None]
